FAERS Safety Report 8336565-7 (Version None)
Quarter: 2012Q2

REPORT INFORMATION
  Report Type: 
  Country: None (occurrence: None)
  Receive Date: 20120501
  Receipt Date: 20120214
  Transmission Date: 20120825
  Serious: Yes (Death)
  Sender: FDA-Public Use
  Company Number: 2012P1003068

PATIENT
  Age: 80 Year
  Sex: Male
  Weight: 90.7194 kg

DRUGS (1)
  1. FENTANYL-50 [Suspect]
     Indication: NEOPLASM MALIGNANT
     Dosage: 1 PATCH;Q72H
     Dates: start: 20080211, end: 20080323

REACTIONS (1)
  - HOSPICE CARE [None]
